FAERS Safety Report 11469448 (Version 2)
Quarter: 2015Q3

REPORT INFORMATION
  Report Type: Spontaneous
  Country: US (occurrence: US)
  Receive Date: 20150903
  Receipt Date: 20150903
  Transmission Date: 20151125
  Serious: No
  Sender: FDA-Public Use
  Company Number: US-ELI_LILLY_AND_COMPANY-US201110002183

PATIENT
  Age: 25 Year
  Sex: Male

DRUGS (4)
  1. CYMBALTA [Suspect]
     Active Substance: DULOXETINE HYDROCHLORIDE
     Dosage: 15 MG, UNK
  2. CYMBALTA [Suspect]
     Active Substance: DULOXETINE HYDROCHLORIDE
     Dosage: 7.5 MG, UNK
  3. CYMBALTA [Suspect]
     Active Substance: DULOXETINE HYDROCHLORIDE
     Dosage: 60 MG, UNK
  4. CYMBALTA [Suspect]
     Active Substance: DULOXETINE HYDROCHLORIDE
     Dosage: 30 MG, UNK

REACTIONS (5)
  - Drug withdrawal syndrome [Recovered/Resolved]
  - Intentional product misuse [Recovered/Resolved]
  - Dizziness [Recovered/Resolved]
  - Wrong technique in product usage process [Recovered/Resolved]
  - Headache [Recovered/Resolved]
